FAERS Safety Report 24438339 (Version 1)
Quarter: 2024Q4

REPORT INFORMATION
  Report Type: Spontaneous
  Country: IN (occurrence: IN)
  Receive Date: 20241015
  Receipt Date: 20241015
  Transmission Date: 20250115
  Serious: Yes (Other)
  Sender: PURACAP PHARMACEUTICAL LLC
  Company Number: IN-PURACAP-IN-2024EPCLIT01212

PATIENT
  Sex: Female

DRUGS (13)
  1. IBUPROFEN [Suspect]
     Active Substance: IBUPROFEN
     Indication: Migraine
     Route: 065
  2. NAPROXEN SODIUM [Suspect]
     Active Substance: NAPROXEN SODIUM
     Indication: Migraine
     Route: 065
  3. DICLOFENAC SODIUM [Suspect]
     Active Substance: DICLOFENAC SODIUM
     Indication: Migraine
     Route: 065
  4. TRAMADOL [Suspect]
     Active Substance: TRAMADOL
     Indication: Migraine
     Route: 065
  5. RIZATRIPTAN [Suspect]
     Active Substance: RIZATRIPTAN
     Indication: Migraine
     Route: 065
  6. PREDNISOLONE [Suspect]
     Active Substance: PREDNISOLONE
     Indication: Migraine
     Route: 065
  7. ERGOTAMINE [Suspect]
     Active Substance: CAFFEINE\ERGOTAMINE\ERGOTAMINE TARTRATE
     Indication: Migraine
     Route: 065
     Dates: start: 2022
  8. AMITRIPTYLINE [Suspect]
     Active Substance: AMITRIPTYLINE
     Indication: Migraine
     Route: 065
  9. SUMATRIPTAN AND NAPROXEN SODIUM [Suspect]
     Active Substance: NAPROXEN SODIUM\SUMATRIPTAN SUCCINATE
     Indication: Migraine
     Dosage: 58/500MG
     Route: 065
     Dates: start: 202201
  10. TOPIRAMATE [Suspect]
     Active Substance: TOPIRAMATE
     Indication: Migraine
     Route: 065
  11. VALPROATE [Suspect]
     Active Substance: VALPROIC ACID
     Indication: Migraine
     Route: 065
  12. PROPRANOLOL [Suspect]
     Active Substance: PROPRANOLOL HYDROCHLORIDE
     Indication: Migraine
     Route: 065
  13. FLUNARIZINE [Suspect]
     Active Substance: FLUNARIZINE
     Indication: Migraine
     Route: 065

REACTIONS (2)
  - Serotonin syndrome [Recovered/Resolved]
  - Drug ineffective for unapproved indication [Unknown]
